FAERS Safety Report 24098041 (Version 1)
Quarter: 2024Q3

REPORT INFORMATION
  Report Type: Spontaneous
  Country: US (occurrence: None)
  Receive Date: 20240716
  Receipt Date: 20240716
  Transmission Date: 20241017
  Serious: Yes (Life-Threatening)
  Sender: Public
  Company Number: None

PATIENT
  Age: 58 Year
  Sex: Female

DRUGS (1)
  1. EVEROLIMUS [Suspect]
     Active Substance: EVEROLIMUS
     Indication: Breast cancer
     Dosage: FREQUENCY : DAILY;?
     Route: 048
     Dates: start: 202403, end: 202403

REACTIONS (6)
  - Peripheral swelling [None]
  - Peripheral swelling [None]
  - Dry throat [None]
  - Dyspnoea [None]
  - Near death experience [None]
  - Hypersensitivity [None]

NARRATIVE: CASE EVENT DATE: 20240301
